FAERS Safety Report 10735044 (Version 2)
Quarter: 2015Q3

REPORT INFORMATION
  Report Type: Spontaneous
  Country: US (occurrence: US)
  Receive Date: 20150123
  Receipt Date: 20150722
  Transmission Date: 20151125
  Serious: Yes (Other)
  Sender: FDA-Public Use
  Company Number: US-BAUSCH-BL-2015-001674

PATIENT
  Sex: Male
  Weight: 79.59 kg

DRUGS (3)
  1. BUPROPION HYDROCHLORIDE. [Suspect]
     Active Substance: BUPROPION HYDROCHLORIDE
     Indication: MENTAL DISORDER
  2. REQUIP [Suspect]
     Active Substance: ROPINIROLE HYDROCHLORIDE
     Indication: PARKINSON^S DISEASE
     Dates: start: 1999, end: 20150204
  3. WELLBUTRIN XL [Suspect]
     Active Substance: BUPROPION HYDROCHLORIDE
     Indication: MENTAL DISORDER

REACTIONS (5)
  - Mental disorder [Unknown]
  - Drug ineffective [Unknown]
  - Cerebrovascular accident [Recovered/Resolved with Sequelae]
  - Parkinson^s disease [Unknown]
  - Adverse event [Unknown]

NARRATIVE: CASE EVENT DATE: 1999
